FAERS Safety Report 4657352-7 (Version None)
Quarter: 2005Q2

REPORT INFORMATION
  Report Type: 
  Country: None (occurrence: None)
  Receive Date: 20050411
  Receipt Date: 20020605
  Transmission Date: 20051028
  Serious: Yes (Hospitalization, Other)
  Sender: FDA-Public Use
  Company Number: 5054

PATIENT
  Age: 30 Month
  Sex: Male

DRUGS (9)
  1. VINCRISTINE [Suspect]
     Indication: ACUTE LYMPHOCYTIC LEUKAEMIA
     Dosage: 1.5 MG/M2 WEEKLY IV
     Route: 042
  2. PREDNISONE TAB [Concomitant]
  3. DAUNOMYCIN [Concomitant]
  4. ASPARAGINASE [Concomitant]
  5. CYTARABINE [Concomitant]
  6. TENIPOSIDE [Concomitant]
  7. METHOTREXATE [Concomitant]
  8. LEUCOVORIN CALCIUM [Concomitant]
  9. HYDROCORTISONE [Concomitant]

REACTIONS (1)
  - NEUROTOXICITY [None]
